FAERS Safety Report 20340333 (Version 1)
Quarter: 2022Q1

REPORT INFORMATION
  Report Type: Report from Study
  Country: CA (occurrence: None)
  Receive Date: 20220117
  Receipt Date: 20220117
  Transmission Date: 20220424
  Serious: Yes (Hospitalization)
  Sender: FDA-Public Use
  Company Number: CA-ROCHE-2997553

PATIENT
  Age: 65 Year
  Sex: Female

DRUGS (7)
  1. ADO-TRASTUZUMAB EMTANSINE [Suspect]
     Active Substance: ADO-TRASTUZUMAB EMTANSINE
     Indication: HER2 positive breast cancer
     Dosage: DATE OF LAST DOSE PRIOR TO ADVERSE EVENT 13/MAY/2015
     Route: 042
     Dates: start: 20141001
  2. PERTUZUMAB [Suspect]
     Active Substance: PERTUZUMAB
     Indication: HER2 positive breast cancer
     Dosage: DATE OF LAST DOSE PRIOR TO ADVERSE EVENT 25/NOV/2015
     Route: 042
     Dates: start: 20141001
  3. TRASTUZUMAB [Suspect]
     Active Substance: TRASTUZUMAB
     Indication: HER2 positive breast cancer
     Dosage: DATE LO LAST DOSE PRIOR TO AE 25/NOV/2015
     Route: 041
     Dates: start: 20150624
  4. CEFTRIAXONE [Concomitant]
     Active Substance: CEFTRIAXONE
  5. PANTOPRAZOLE SODIUM [Concomitant]
     Active Substance: PANTOPRAZOLE SODIUM
     Route: 048
  6. CIPROFLOXACIN [Concomitant]
     Active Substance: CIPROFLOXACIN
  7. NADOLOL [Concomitant]
     Active Substance: NADOLOL
     Dates: start: 20211105

REACTIONS (1)
  - Upper gastrointestinal haemorrhage [Recovered/Resolved]

NARRATIVE: CASE EVENT DATE: 20211028
